FAERS Safety Report 13449212 (Version 2)
Quarter: 2017Q2

REPORT INFORMATION
  Report Type: Spontaneous
  Country: AU (occurrence: AU)
  Receive Date: 20170417
  Receipt Date: 20170420
  Transmission Date: 20170830
  Serious: No
  Sender: FDA-Public Use
  Company Number: AU-BAUSCH-BL-2017-009546

PATIENT
  Sex: Female

DRUGS (1)
  1. SOLONE [Suspect]
     Active Substance: PREDNISOLONE
     Indication: LUNG DISORDER
     Route: 048

REACTIONS (3)
  - Lung disorder [Unknown]
  - Urinary tract infection [Not Recovered/Not Resolved]
  - Condition aggravated [Unknown]
